FAERS Safety Report 8015942-8 (Version None)
Quarter: 2011Q4

REPORT INFORMATION
  Report Type: 
  Country: None (occurrence: None)
  Receive Date: 20111223
  Receipt Date: 20111219
  Transmission Date: 20120403
  Serious: Yes (Other)
  Sender: FDA-Public Use
  Company Number: GER/UKI/11/0022384

PATIENT
  Age: 49 Year
  Sex: Female
  Weight: 60 kg

DRUGS (5)
  1. FLUOXETINE HYDROCHLORIDE [Suspect]
     Indication: DEPRESSION
     Dates: start: 20110901
  2. FLUOXETINE HYDROCHLORIDE [Suspect]
     Indication: ANXIETY
     Dates: start: 20110901
  3. CLARITHROMYCIN [Suspect]
     Indication: POLLAKIURIA
  4. CLARITHROMYCIN [Suspect]
     Indication: LOWER RESPIRATORY TRACT INFECTION
  5. TOLTERODINE TARTRATE [Suspect]
     Indication: BLADDER IRRITATION
     Dosage: 4 MG, 1 IN 1 D, ORAL
     Route: 048
     Dates: start: 20111018, end: 20111019

REACTIONS (6)
  - POLLAKIURIA [None]
  - DISEASE RECURRENCE [None]
  - ROAD TRAFFIC ACCIDENT [None]
  - EPILEPSY [None]
  - DRUG LEVEL INCREASED [None]
  - POTENTIATING DRUG INTERACTION [None]
